FAERS Safety Report 4918457-6 (Version None)
Quarter: 2006Q1

REPORT INFORMATION
  Report Type: 
  Country: None (occurrence: None)
  Receive Date: 20060222
  Receipt Date: 20060215
  Transmission Date: 20060701
  Serious: Yes (Other)
  Sender: FDA-Public Use
  Company Number: PHEH2006US02156

PATIENT
  Age: 87 Year
  Sex: Female

DRUGS (2)
  1. GENTEAL MILD LUBRICANT EYE DROPS (NVO) [Suspect]
     Indication: MACULAR DEGENERATION
     Dosage: UNK GTT, UNK
  2. GENTEAL MODERATE LUBRICANT EYE DROPS (NVO) [Suspect]
     Indication: MACULAR DEGENERATION
     Dosage: UNK GTT (OU), QD

REACTIONS (2)
  - MACULAR DEGENERATION [None]
  - VISUAL ACUITY REDUCED [None]
